FAERS Safety Report 7787095-2 (Version None)
Quarter: 2011Q3

REPORT INFORMATION
  Report Type: 
  Country: None (occurrence: None)
  Receive Date: 20110929
  Receipt Date: 20110920
  Transmission Date: 20111222
  Serious: Yes (Hospitalization)
  Sender: FDA-Public Use
  Company Number: BR-ASTRAZENECA-2011SE56798

PATIENT
  Age: 74 Year
  Sex: Female

DRUGS (6)
  1. ATENOLOL [Suspect]
     Indication: HYPERTENSION
     Dosage: DAILY
     Route: 048
     Dates: start: 20110101, end: 20110919
  2. BRILINTA [Suspect]
     Indication: CEREBROVASCULAR ACCIDENT
     Dosage: TWO TIMES A DAY
     Route: 048
     Dates: start: 20110905
  3. CRESTOR [Suspect]
     Dosage: DAILY
     Route: 048
     Dates: start: 20110905
  4. PROPRANOLOL [Suspect]
     Indication: HYPERTENSION
     Dosage: DAILY
     Route: 048
     Dates: start: 20030101, end: 20110101
  5. ASPIRIN [Concomitant]
     Indication: CEREBROVASCULAR ACCIDENT
     Route: 048
     Dates: start: 20110905
  6. HYDROCHLOROTHIAZIDE [Concomitant]
     Indication: HYPERTENSION
     Dosage: DAILY
     Route: 048
     Dates: start: 20110101

REACTIONS (6)
  - EYE HAEMORRHAGE [None]
  - ILL-DEFINED DISORDER [None]
  - CEREBROVASCULAR ACCIDENT [None]
  - VAGINAL HAEMORRHAGE [None]
  - HYPOTENSION [None]
  - DRUG DOSE OMISSION [None]
